FAERS Safety Report 10580979 (Version 1)
Quarter: 2014Q4

REPORT INFORMATION
  Report Type: Spontaneous
  Country: IT (occurrence: None)
  Receive Date: 20141110
  Receipt Date: 20141110
  Transmission Date: 20150529
  Serious: Yes (Hospitalization)
  Sender: FDA-Public Use
  Company Number: IMP_08061_2014

PATIENT
  Age: 76 Year
  Sex: Male

DRUGS (7)
  1. DELAPRIL/INDAPAMIDE [Concomitant]
  2. METFORMIN HCL [Suspect]
     Active Substance: METFORMIN HYDROCHLORIDE
     Indication: TYPE 2 DIABETES MELLITUS
  3. GLICLAZIDE [Concomitant]
     Active Substance: GLICLAZIDE
  4. HYDROCHLOROTHIAZIDE W OLMESARTAN [Concomitant]
  5. BISOPROLOL [Concomitant]
     Active Substance: BISOPROLOL
  6. LEVOFLOXACIN. [Concomitant]
     Active Substance: LEVOFLOXACIN
  7. SIMVASTATIN. [Concomitant]
     Active Substance: SIMVASTATIN

REACTIONS (10)
  - Renal impairment [None]
  - Haemodialysis [None]
  - Enterococcal sepsis [None]
  - Escherichia urinary tract infection [None]
  - Clostridium colitis [None]
  - Lethargy [None]
  - Hypoglycaemia [None]
  - Toxicity to various agents [None]
  - Disorientation [None]
  - Metabolic acidosis [None]
